FAERS Safety Report 6257870-4 (Version None)
Quarter: 2009Q3

REPORT INFORMATION
  Report Type: 
  Country: None (occurrence: None)
  Receive Date: 20090707
  Receipt Date: 20090625
  Transmission Date: 20100115
  Serious: Yes (Hospitalization, Other)
  Sender: FDA-Public Use
  Company Number: AU-RANBAXY-2009RR-24642

PATIENT
  Age: 68 Year
  Sex: Female

DRUGS (8)
  1. METFORMIN HCL [Suspect]
     Indication: DIABETES MELLITUS
     Dosage: 3 G, UNK
     Route: 048
     Dates: end: 20080425
  2. GLIBENCLAMIDE [Suspect]
     Indication: DIABETES MELLITUS
     Dosage: 20 MG, UNK
     Route: 048
     Dates: end: 20080425
  3. LANTUS [Concomitant]
     Dosage: 8 UL, UNK
     Route: 058
  4. TELMISARTAN/HYDROCHLOROTHIAZIDE [Concomitant]
     Route: 048
  5. LERCANIDIPINE [Concomitant]
     Dosage: 20 MG, UNK
     Route: 048
  6. GLUCOSAMINE HYDROCHLORIDE [Concomitant]
  7. SERETIDE 250/25 MDI [Concomitant]
  8. SIMVASTATIN [Concomitant]
     Dosage: 40 MG, UNK
     Route: 048

REACTIONS (6)
  - ANURIA [None]
  - DEHYDRATION [None]
  - LACTIC ACIDOSIS [None]
  - NAUSEA [None]
  - RENAL FAILURE ACUTE [None]
  - VOMITING [None]
